FAERS Safety Report 4946269-6 (Version None)
Quarter: 2006Q1

REPORT INFORMATION
  Report Type: 
  Country: None (occurrence: None)
  Receive Date: 20060317
  Receipt Date: 20060131
  Transmission Date: 20060701
  Serious: Yes (Hospitalization)
  Sender: FDA-Public Use
  Company Number: PHRM2006FR00669

PATIENT
  Age: 77 Year
  Sex: Male

DRUGS (6)
  1. LAMISIL [Suspect]
     Dosage: UNK, UNK
     Route: 061
     Dates: start: 20051109, end: 20051123
  2. DIPROSONE [Suspect]
     Dosage: UNK, UNK
     Route: 061
     Dates: start: 20051123
  3. GURONSAN [Suspect]
     Dosage: UNK, PRN
     Route: 048
  4. LOCOID [Suspect]
     Dosage: UNK, UNK
     Route: 061
     Dates: start: 20051109, end: 20051123
  5. SOLUPRED [Suspect]
     Route: 048
     Dates: start: 20051201, end: 20051228
  6. EFFERALGAN [Concomitant]
     Dosage: UNK, PRN
     Route: 065

REACTIONS (10)
  - CONDITION AGGRAVATED [None]
  - DERMATITIS PSORIASIFORM [None]
  - ERYTHRODERMIC PSORIASIS [None]
  - HYPERKERATOSIS PALMARIS AND PLANTARIS [None]
  - PARAKERATOSIS [None]
  - RASH [None]
  - SKIN DISCOLOURATION [None]
  - SKIN EXFOLIATION [None]
  - TOXIC SKIN ERUPTION [None]
  - VASCULITIS [None]
